FAERS Safety Report 11354001 (Version 1)
Quarter: 2015Q3

REPORT INFORMATION
  Report Type: Spontaneous
  Country: US (occurrence: US)
  Receive Date: 20150807
  Receipt Date: 20150807
  Transmission Date: 20151125
  Serious: No
  Sender: FDA-Public Use
  Company Number: US-JNJFOC-20150121671

PATIENT
  Sex: Female
  Weight: 46.72 kg

DRUGS (5)
  1. BIOTIN [Concomitant]
     Active Substance: BIOTIN
     Indication: HAIR GROWTH ABNORMAL
     Route: 065
  2. AMLODIPINE [Concomitant]
     Active Substance: AMLODIPINE BESYLATE
     Indication: HYPERTENSION
     Dosage: SEVERAL YEARS
     Route: 065
  3. WOMENS ROGAINE UNSCENTED [Suspect]
     Active Substance: MINOXIDIL
     Route: 061
  4. BENICAR [Concomitant]
     Active Substance: OLMESARTAN MEDOXOMIL
     Indication: HYPERTENSION
     Dosage: SEVERAL YEARS
     Route: 065
  5. WOMENS ROGAINE UNSCENTED [Suspect]
     Active Substance: MINOXIDIL
     Indication: ALOPECIA
     Dosage: 1/2 A CAPFUL
     Route: 061
     Dates: start: 20150112

REACTIONS (1)
  - Skin exfoliation [Not Recovered/Not Resolved]
